FAERS Safety Report 14315392 (Version 6)
Quarter: 2018Q4

REPORT INFORMATION
  Report Type: Report from Study
  Country: US (occurrence: US)
  Receive Date: 20171221
  Receipt Date: 20181203
  Transmission Date: 20190204
  Serious: Yes (Hospitalization, Other)
  Sender: FDA-Public Use
  Company Number: US-ACTELION-A-US2017-164354

PATIENT
  Age: 44 Year
  Sex: Female

DRUGS (3)
  1. UPTRAVI [Suspect]
     Active Substance: SELEXIPAG
     Dosage: UNK
     Route: 048
  2. UPTRAVI [Suspect]
     Active Substance: SELEXIPAG
     Indication: PULMONARY ARTERIAL HYPERTENSION
     Dosage: 1600 MCG, BID
     Route: 048
     Dates: start: 20160516
  3. AMBRISENTAN [Suspect]
     Active Substance: AMBRISENTAN
     Indication: PULMONARY HYPERTENSION
     Dosage: 5 MG, QID
     Route: 048
     Dates: start: 20160414

REACTIONS (5)
  - Peripheral swelling [Not Recovered/Not Resolved]
  - Haemoglobin abnormal [Unknown]
  - Dyspnoea [Unknown]
  - Intestinal obstruction [Unknown]
  - Balance disorder [Unknown]

NARRATIVE: CASE EVENT DATE: 20180324
